FAERS Safety Report 7188843 (Version 2)
Quarter: 2014Q2

REPORT INFORMATION
  Report Type: Spontaneous
  Country: None (occurrence: None)
  Receive Date: 20091109
  Receipt Date: 20140415
  Transmission Date: 20141212
  Serious: Yes (Other)
  Sender: FDA-Public Use
  Company Number: AUR-APL-2009-01030

PATIENT
  Age: 46 Year
  Sex: Male

DRUGS (1)
  1. CIPROFLOXACIN [Suspect]
     Indication: PELVIC PAIN
     Dosage: 500MG - Q12HOURS - ORAL
     Route: 048

REACTIONS (5)
  - Erythema multiforme [None]
  - Alcohol use [None]
  - Alcohol interaction [None]
  - Epidermal necrosis [None]
  - Epidermal necrosis [None]
